FAERS Safety Report 10770689 (Version 2)
Quarter: 2015Q1

REPORT INFORMATION
  Report Type: Report from Study
  Country: DE (occurrence: DE)
  Receive Date: 20150206
  Receipt Date: 20150324
  Transmission Date: 20150721
  Serious: Yes (Death, Other)
  Sender: FDA-Public Use
  Company Number: DE-ABBVIE-15P-062-1343519-00

PATIENT
  Age: 69 Year
  Sex: Female

DRUGS (1)
  1. DUODOPA [Suspect]
     Active Substance: CARBIDOPA\LEVODOPA
     Indication: PARKINSON^S DISEASE
     Dosage: MD 3.4ML, CRD 3.6ML/H CRN 3.6ML/H, ED 2.0ML
     Route: 050
     Dates: start: 20120210

REACTIONS (6)
  - Fatigue [Fatal]
  - Device dislocation [Unknown]
  - Gastrointestinal stoma complication [Unknown]
  - Fistula [Unknown]
  - Abdominal wall infection [Unknown]
  - Polyneuropathy [Fatal]

NARRATIVE: CASE EVENT DATE: 201411
